FAERS Safety Report 18378956 (Version 3)
Quarter: 2020Q4

REPORT INFORMATION
  Report Type: Spontaneous
  Country: RO (occurrence: RO)
  Receive Date: 20201013
  Receipt Date: 20201111
  Transmission Date: 20210114
  Serious: Yes (Life-Threatening, Hospitalization, Other)
  Sender: FDA-Public Use
  Company Number: RO-MYLANLABS-2020M1086157

PATIENT
  Age: 45 Year
  Sex: Male

DRUGS (8)
  1. LOPINAVIR/RITONAVIR [Suspect]
     Active Substance: LOPINAVIR\RITONAVIR
     Indication: COVID-19
     Dosage: UNK
  2. HYDROCORTISONE HEMISUCCINATE [Suspect]
     Active Substance: HYDROCORTISONE HEMISUCCINATE
     Indication: PRODUCT USED FOR UNKNOWN INDICATION
     Dosage: 100 MILLIGRAM, QD (50 MG, 2X PER DAY)
  3. LOPINAVIR/RITONAVIR [Suspect]
     Active Substance: LOPINAVIR\RITONAVIR
     Indication: PNEUMONIA
     Dosage: 2-0-2
     Route: 065
  4. AZITHROMYCIN ANHYDROUS. [Suspect]
     Active Substance: AZITHROMYCIN ANHYDROUS
     Indication: PNEUMONIA
     Dosage: 250 MILLIGRAM (1-0-0)
  5. FRAXIPARIN [Suspect]
     Active Substance: NADROPARIN CALCIUM
     Indication: COVID-19
     Dosage: 1.4 MILLILITER, QD (0.7 ML, 2X PER DAY)
  6. FRAXIPARIN [Suspect]
     Active Substance: NADROPARIN CALCIUM
     Dosage: UNK
     Route: 065
  7. AZITHROMYCIN ANHYDROUS. [Suspect]
     Active Substance: AZITHROMYCIN ANHYDROUS
     Indication: COVID-19
     Dosage: 250 MILLIGRAM 2-0-0
  8. AZITHROMYCIN ANHYDROUS. [Suspect]
     Active Substance: AZITHROMYCIN ANHYDROUS
     Dosage: 250 MILLIGRAM, UNK, 2-0-0, THEN 1-0-0
     Route: 065

REACTIONS (3)
  - Condition aggravated [Unknown]
  - Off label use [Unknown]
  - Therapeutic product effect incomplete [Recovering/Resolving]
